FAERS Safety Report 11917340 (Version 3)
Quarter: 2016Q1

REPORT INFORMATION
  Report Type: Report from Study
  Country: US (occurrence: US)
  Receive Date: 20160114
  Receipt Date: 20160217
  Transmission Date: 20160526
  Serious: Yes (Death, Other)
  Sender: FDA-Public Use
  Company Number: US-AMGEN-USASP2016003342

PATIENT
  Age: 83 Year
  Sex: Female
  Weight: 91 kg

DRUGS (1)
  1. PROLIA [Suspect]
     Active Substance: DENOSUMAB
     Indication: OSTEOPOROSIS
     Dosage: 60 MG, UNK
     Route: 058
     Dates: start: 20150813

REACTIONS (4)
  - Renal failure [Unknown]
  - Shock [Unknown]
  - Adverse event [Fatal]
  - Hernia repair [Unknown]
